FAERS Safety Report 5086883-3 (Version None)
Quarter: 2006Q3

REPORT INFORMATION
  Report Type: 
  Country: None (occurrence: None)
  Receive Date: 20060823
  Receipt Date: 20060710
  Transmission Date: 20061208
  Serious: Yes (Other)
  Sender: FDA-Public Use
  Company Number: ES-MERCK-0607ESP00014

PATIENT
  Age: 68 Year
  Sex: Male

DRUGS (12)
  1. CANCIDAS [Suspect]
     Indication: SYSTEMIC CANDIDA
     Route: 041
     Dates: start: 20060627, end: 20060702
  2. CANCIDAS [Suspect]
     Route: 041
     Dates: start: 20060703, end: 20060703
  3. AMIODARONE HYDROCHLORIDE [Concomitant]
     Indication: SUPRAVENTRICULAR TACHYCARDIA
     Route: 042
     Dates: start: 20060626, end: 20060628
  4. DIPYRONE [Concomitant]
     Indication: HYPERTHERMIA
     Route: 042
     Dates: start: 20060620, end: 20060627
  5. SPIRONOLACTONE [Concomitant]
     Indication: HYPOKALAEMIA
     Route: 042
     Dates: start: 20060622, end: 20060626
  6. SPIRONOLACTONE [Concomitant]
     Indication: POLYURIA
     Route: 042
     Dates: start: 20060622, end: 20060626
  7. DALTEPARIN SODIUM [Concomitant]
     Indication: THROMBOSIS PROPHYLAXIS
     Route: 058
     Dates: start: 20060601
  8. PROPOFOL [Concomitant]
     Indication: SEDATION
     Route: 042
     Dates: start: 20060612, end: 20060707
  9. NOREPINEPHRINE HYDROCHLORIDE [Concomitant]
     Indication: HYPOTENSION
     Route: 042
     Dates: start: 20060612, end: 20060707
  10. TEICOPLANIN [Concomitant]
     Indication: BLOOD CULTURE POSITIVE
     Route: 042
     Dates: start: 20060624, end: 20060704
  11. DIGOXIN [Concomitant]
     Indication: SUPRAVENTRICULAR TACHYCARDIA
     Route: 042
     Dates: start: 20060626, end: 20060628
  12. FLUCONAZOLE [Concomitant]
     Indication: CANDIDIASIS
     Route: 042
     Dates: start: 20060621, end: 20060626

REACTIONS (10)
  - ANAEMIA [None]
  - ANISOCYTOSIS [None]
  - CHOLESTASIS [None]
  - EOSINOPHIL COUNT INCREASED [None]
  - HEPATOTOXICITY [None]
  - HYPOCHROMASIA [None]
  - MACROCYTOSIS [None]
  - PLATELET COUNT DECREASED [None]
  - PYREXIA [None]
  - WHITE BLOOD CELL COUNT DECREASED [None]
